FAERS Safety Report 6665592-0 (Version None)
Quarter: 2010Q2

REPORT INFORMATION
  Report Type: 
  Country: None (occurrence: None)
  Receive Date: 20100402
  Receipt Date: 20100323
  Transmission Date: 20101027
  Serious: Yes (Other)
  Sender: FDA-Public Use
  Company Number: US-PFIZER INC-2010037394

PATIENT
  Sex: Female
  Weight: 67.12 kg

DRUGS (5)
  1. LYRICA [Suspect]
     Indication: ANXIETY
     Dosage: 200 MG, 1X/DAY
     Route: 048
  2. BUSPAR [Concomitant]
     Indication: ANXIETY
     Dosage: 20 MG, 3X/DAY
     Route: 048
  3. XANAX [Concomitant]
     Indication: ANXIETY
     Dosage: 1 MG, 1X/DAY
     Route: 048
  4. IMITREX [Concomitant]
     Indication: MIGRAINE
     Dosage: 50 MG, AS NEEDED
     Route: 048
  5. TRAZODONE [Concomitant]
     Indication: SLEEP DISORDER
     Dosage: 100 MG, 1X/DAY
     Route: 048

REACTIONS (3)
  - HEPATIC ENZYME INCREASED [None]
  - JOINT SWELLING [None]
  - VISION BLURRED [None]
